FAERS Safety Report 10197522 (Version 1)
Quarter: 2014Q2

REPORT INFORMATION
  Report Type: Spontaneous
  Country: US (occurrence: US)
  Receive Date: 20140527
  Receipt Date: 20140527
  Transmission Date: 20141212
  Serious: No
  Sender: FDA-Public Use
  Company Number: US-NOVEN-14US008931

PATIENT
  Sex: Female

DRUGS (3)
  1. MINIVELLE [Suspect]
     Indication: HORMONE REPLACEMENT THERAPY
     Dosage: 0.075 MG/DAY, 2/WK
     Route: 062
  2. MINIVELLE [Suspect]
     Dosage: 0.1 MG/DAY, FOR HALF THE WEEK
  3. MINIVELLE [Suspect]
     Dosage: 0.075 MG/DAY, FOR HALF THE WEEK
     Dates: start: 2013

REACTIONS (3)
  - Dizziness [Not Recovered/Not Resolved]
  - Headache [Not Recovered/Not Resolved]
  - Wrong technique in drug usage process [Recovered/Resolved]
